FAERS Safety Report 6701337-3 (Version None)
Quarter: 2010Q2

REPORT INFORMATION
  Report Type: 
  Country: None (occurrence: None)
  Receive Date: 20100429
  Receipt Date: 20100419
  Transmission Date: 20101027
  Serious: Yes (Hospitalization)
  Sender: FDA-Public Use
  Company Number: US-BIOGENIDEC-2010BI012990

PATIENT
  Age: 59 Year
  Sex: Female
  Weight: 74 kg

DRUGS (5)
  1. AVONEX [Suspect]
     Indication: MULTIPLE SCLEROSIS
     Route: 030
     Dates: start: 20090508
  2. VERAPAMIL [Concomitant]
     Indication: MIGRAINE
     Dates: start: 20000101
  3. LEVOXYL [Concomitant]
     Indication: HYPOTHYROIDISM
     Route: 048
     Dates: start: 19950101
  4. ELAVIL [Concomitant]
     Indication: MIGRAINE
     Dates: start: 20000101
  5. CALCIUM [Concomitant]
     Indication: PROPHYLAXIS
     Dates: start: 20070101

REACTIONS (1)
  - RECTAL PROLAPSE [None]
